FAERS Safety Report 7368598-1 (Version None)
Quarter: 2011Q1

REPORT INFORMATION
  Report Type: 
  Country: None (occurrence: None)
  Receive Date: 20110310
  Receipt Date: 20110225
  Transmission Date: 20110831
  Serious: Yes (Hospitalization)
  Sender: FDA-Public Use
  Company Number: 2011SP006022

PATIENT
  Age: 47 Year
  Sex: Female

DRUGS (1)
  1. TEMODAL [Suspect]
     Indication: BRAIN STEM GLIOMA
     Dosage: 290 MG;QD;PO
     Route: 048
     Dates: start: 20100101

REACTIONS (1)
  - CHOLECYSTITIS ACUTE [None]
